FAERS Safety Report 13898444 (Version 1)
Quarter: 2017Q3

REPORT INFORMATION
  Report Type: Spontaneous
  Country: US (occurrence: US)
  Receive Date: 20170823
  Receipt Date: 20170823
  Transmission Date: 20171127
  Serious: No
  Sender: FDA-Public Use
  Company Number: US-BIOMARINAP-US-2015-108256

PATIENT
  Age: 8 Month
  Sex: Male

DRUGS (2)
  1. ALDURAZYME [Suspect]
     Active Substance: LARONIDASE
     Indication: MUCOPOLYSACCHARIDOSIS I
     Dosage: 5.8 MG, UNK
     Route: 041
     Dates: start: 20150831, end: 2016
  2. ALDURAZYME [Suspect]
     Active Substance: LARONIDASE
     Dosage: 5.8 UNK, UNK
     Route: 041

REACTIONS (4)
  - Heart rate increased [Unknown]
  - Malaise [Unknown]
  - Pyrexia [Unknown]
  - Cyanosis [Unknown]

NARRATIVE: CASE EVENT DATE: 20160304
